FAERS Safety Report 20166131 (Version 1)
Quarter: 2021Q4

REPORT INFORMATION
  Report Type: Spontaneous
  Country: US (occurrence: US)
  Receive Date: 20211209
  Receipt Date: 20211209
  Transmission Date: 20220303
  Serious: Yes (Hospitalization, Other)
  Sender: FDA-Public Use
  Company Number: US-GLAXOSMITHKLINE-US2021GSK246691

PATIENT
  Age: 44 Year
  Sex: Female

DRUGS (2)
  1. IMITREX [Suspect]
     Active Substance: SUMATRIPTAN SUCCINATE
     Indication: Migraine
     Dosage: UNK
  2. DEXTROAMPHETAMINE [Concomitant]
     Active Substance: DEXTROAMPHETAMINE
     Indication: Attention deficit hyperactivity disorder
     Dosage: UNK

REACTIONS (8)
  - Reversible cerebral vasoconstriction syndrome [Recovered/Resolved]
  - Headache [Recovered/Resolved]
  - Agitation [Recovered/Resolved]
  - Hypokinesia [Recovered/Resolved]
  - Brain oedema [Recovered/Resolved]
  - Nervous system disorder [Recovered/Resolved]
  - Blindness [Recovered/Resolved]
  - Stenosis [Recovered/Resolved]
